FAERS Safety Report 18643240 (Version 3)
Quarter: 2021Q2

REPORT INFORMATION
  Report Type: Spontaneous
  Country: US (occurrence: US)
  Receive Date: 20201221
  Receipt Date: 20210521
  Transmission Date: 20210717
  Serious: Yes (Other)
  Sender: FDA-Public Use
  Company Number: US-KYOWAKIRIN-2020BKK022021

PATIENT

DRUGS (8)
  1. CRYSVITA [Suspect]
     Active Substance: BUROSUMAB-TWZA
     Indication: HEREDITARY HYPOPHOSPHATAEMIC RICKETS
     Dosage: 60 MG, 1X/2 WEEKS
     Route: 065
     Dates: start: 2019
  2. TYLENOL [Concomitant]
     Active Substance: ACETAMINOPHEN
     Indication: PRODUCT USED FOR UNKNOWN INDICATION
     Dosage: UNK
     Route: 065
  3. AMITRIPTYLINE [Concomitant]
     Active Substance: AMITRIPTYLINE
     Indication: PRODUCT USED FOR UNKNOWN INDICATION
     Dosage: UNK
     Route: 065
  4. ALBUTEROL [SALBUTAMOL] [Concomitant]
     Active Substance: ALBUTEROL
     Indication: PRODUCT USED FOR UNKNOWN INDICATION
     Dosage: UNK, PRN
     Route: 065
  5. FLOVENT [Concomitant]
     Active Substance: FLUTICASONE PROPIONATE
     Indication: PRODUCT USED FOR UNKNOWN INDICATION
     Dosage: 110 UG,2 PUFFS BID
     Route: 065
  6. MIRALAX [Concomitant]
     Active Substance: POLYETHYLENE GLYCOL 3350
     Indication: PRODUCT USED FOR UNKNOWN INDICATION
     Dosage: UNK
     Route: 065
  7. MELATONIN [Concomitant]
     Active Substance: MELATONIN
     Indication: PRODUCT USED FOR UNKNOWN INDICATION
     Dosage: 3 MG
     Route: 065
  8. VITAMIN D3 [Concomitant]
     Active Substance: CHOLECALCIFEROL
     Indication: PRODUCT USED FOR UNKNOWN INDICATION
     Dosage: UNK
     Route: 065

REACTIONS (3)
  - Frequent bowel movements [Unknown]
  - Abdominal discomfort [Unknown]
  - Arnold-Chiari malformation [Unknown]

NARRATIVE: CASE EVENT DATE: 20201209
